FAERS Safety Report 23886697 (Version 1)
Quarter: 2024Q2

REPORT INFORMATION
  Report Type: Other
  Country: FR (occurrence: FR)
  Receive Date: 20240522
  Receipt Date: 20240522
  Transmission Date: 20240716
  Serious: Yes (Life-Threatening, Hospitalization)
  Sender: FDA-Public Use
  Company Number: None

PATIENT
  Age: 38 Year
  Sex: Male
  Weight: 90 kg

DRUGS (3)
  1. IBUPROFEN [Suspect]
     Active Substance: IBUPROFEN
     Indication: Intentional overdose
     Dosage: TOTAL, 20 GRAM (IBUPROF?NE 400 MG X 5 BOITES DE 10 CP SOIT 20 G AU MAXIMUM)
     Route: 048
     Dates: start: 20231023, end: 20231023
  2. ACETAMINOPHEN [Suspect]
     Active Substance: ACETAMINOPHEN
     Indication: Intentional overdose
     Dosage: TOTAL, PARAC?TAMOL 1G X 5 BOITES DE 8 CP SOIT 40 G, AU MAXIMUM
     Route: 048
     Dates: start: 20231023, end: 20231023
  3. BROMAZEPAM [Suspect]
     Active Substance: BROMAZEPAM
     Indication: Intentional overdose
     Dosage: TOTAL, 360 MILLIGRAM (BROMAZEPAM 6 MG  1 ? 2 BOITES DE 30 CP SOIT 360 MG AU MAXIMUM)
     Route: 048
     Dates: start: 20231023, end: 20231023

REACTIONS (3)
  - Metabolic acidosis [Recovered/Resolved]
  - Acute hepatic failure [Recovered/Resolved]
  - Intentional overdose [Recovered/Resolved]

NARRATIVE: CASE EVENT DATE: 20231023
